FAERS Safety Report 10067304 (Version 2)
Quarter: 2014Q3

REPORT INFORMATION
  Report Type: Spontaneous
  Country: US (occurrence: None)
  Receive Date: 20140407
  Receipt Date: 20140827
  Transmission Date: 20150326
  Serious: Yes (Life-Threatening, Hospitalization, Other)
  Sender: FDA-Public Use
  Company Number: 1713747-2014-99937

PATIENT
  Age: 81 Year
  Sex: Male

DRUGS (29)
  1. LYRICA [Concomitant]
     Active Substance: PREGABALIN
  2. NOVOLOG MIX 70/30 [Concomitant]
     Active Substance: INSULIN ASPART
  3. LIDOCAINE 2% [Concomitant]
     Active Substance: LIDOCAINE
  4. VITAMIN B [Concomitant]
     Active Substance: VITAMIN B
  5. GABAPENTIN. [Concomitant]
     Active Substance: GABAPENTIN
  6. EPOETIN [Concomitant]
     Active Substance: ERYTHROPOIETIN
  7. TRIAMCINOLONE [Concomitant]
     Active Substance: TRIAMCINOLONE
  8. LACTAID FAST ACT [Concomitant]
     Active Substance: LACTASE
  9. NEPHRO-VITE [Concomitant]
  10. POTASSIUM [Concomitant]
     Active Substance: POTASSIUM
  11. HUMALOG [Concomitant]
     Active Substance: INSULIN LISPRO
  12. LIBERTY CYCLER AND TUBING [Concomitant]
  13. RENAGEL [Concomitant]
     Active Substance: SEVELAMER HYDROCHLORIDE
  14. DELFLEX [Suspect]
     Active Substance: CALCIUM CHLORIDE\DEXTROSE MONOHYDRATE\MAGNESIUM CHLORIDE\SODIUM CHLORIDE\SODIUM LACTATE
     Indication: RENAL FAILURE CHRONIC
  15. IMODIUM [Concomitant]
     Active Substance: LOPERAMIDE HYDROCHLORIDE
  16. SILVER SULFADIAZINE. [Concomitant]
     Active Substance: SILVER SULFADIAZINE
  17. OMEPRAZOLE. [Concomitant]
     Active Substance: OMEPRAZOLE
  18. RENVELA [Concomitant]
     Active Substance: SEVELAMER CARBONATE
  19. MELATONIN [Concomitant]
     Active Substance: MELATONIN
  20. BETAMETHASONE DIPROPIONATE. [Concomitant]
     Active Substance: BETAMETHASONE DIPROPIONATE
  21. TRAMADOL [Concomitant]
     Active Substance: TRAMADOL
  22. VITAMIN C [Concomitant]
     Active Substance: ASCORBIC ACID
  23. BENADRYL [Concomitant]
     Active Substance: DIPHENHYDRAMINE HYDROCHLORIDE
  24. ERYTHROMYCIN. [Concomitant]
     Active Substance: ERYTHROMYCIN
  25. GENTAMIOIN [Concomitant]
  26. AMMONIUM LACTATE. [Concomitant]
     Active Substance: AMMONIUM LACTATE
  27. DULCOLAX [Concomitant]
     Active Substance: BISACODYL OR DOCUSATE SODIUM
  28. CALCIFEROL [Concomitant]
     Active Substance: ERGOCALCIFEROL
  29. ASPIRIN. [Concomitant]
     Active Substance: ASPIRIN

REACTIONS (5)
  - Respiratory failure [None]
  - Altered state of consciousness [None]
  - Pyrexia [None]
  - Ileus [None]
  - Peritonitis [None]

NARRATIVE: CASE EVENT DATE: 20131221
